FAERS Safety Report 6436363-5 (Version None)
Quarter: 2009Q4

REPORT INFORMATION
  Report Type: 
  Country: None (occurrence: None)
  Receive Date: 20091111
  Receipt Date: 20091029
  Transmission Date: 20100525
  Serious: Yes (Other)
  Sender: FDA-Public Use
  Company Number: PHEH2007US11288

PATIENT
  Sex: Female

DRUGS (8)
  1. ZOMETA [Suspect]
     Indication: MULTIPLE MYELOMA
  2. DEXAMETHASONE [Concomitant]
     Dosage: 4MG / 5 TABLETS DAILY , FOR 5 DAYS
  3. ZOLOFT [Concomitant]
     Dosage: 50 MG / 1 TABLET EVERY NIGHT AT BEDTIME
  4. NASONEX [Concomitant]
     Dosage: 50 MCG / INHALE 2 SPRAYS EACH NOSTRIL DAILY
     Route: 045
  5. CHLORHEXIDINE GLUCONATE [Concomitant]
     Dosage: UNK / RINSE 1/2 OZ 2 X DAY
  6. NEURONTIN [Concomitant]
     Dosage: 100 MG/ 2 CAPSULES 3 X DAILY
  7. MAGIC MOUTHWASH [Concomitant]
     Dosage: UNK
  8. AUGMENTIN '125' [Concomitant]
     Dosage: 125 MG/  1 TABLET EVERY 12 HOURS
     Route: 048

REACTIONS (15)
  - ANAEMIA [None]
  - ANXIETY [None]
  - DECREASED INTEREST [None]
  - DEFORMITY [None]
  - DENTAL OPERATION [None]
  - DISCOMFORT [None]
  - EMOTIONAL DISTRESS [None]
  - GINGIVAL DISORDER [None]
  - HYPOPHAGIA [None]
  - INJURY [None]
  - LIFE EXPECTANCY SHORTENED [None]
  - ORAL DISORDER [None]
  - OSTEONECROSIS [None]
  - PAIN [None]
  - TOOTH EXTRACTION [None]
